FAERS Safety Report 7638578-7 (Version None)
Quarter: 2011Q3

REPORT INFORMATION
  Report Type: 
  Country: None (occurrence: None)
  Receive Date: 20110727
  Receipt Date: 20110722
  Transmission Date: 20111222
  Serious: Yes (Death)
  Sender: FDA-Public Use
  Company Number: US-ASTELLAS-2011US002403

PATIENT
  Sex: Male

DRUGS (1)
  1. PROGRAF [Suspect]
     Indication: LIVER TRANSPLANT
     Dosage: 0.5 MG, UID/QD
     Route: 048
     Dates: end: 20110318

REACTIONS (4)
  - RENAL FAILURE ACUTE [None]
  - ATRIAL FIBRILLATION [None]
  - HEPATIC CIRRHOSIS [None]
  - NEUTROPENIA [None]
